FAERS Safety Report 13181615 (Version 1)
Quarter: 2017Q1

REPORT INFORMATION
  Report Type: Spontaneous
  Country: US (occurrence: US)
  Receive Date: 20170202
  Receipt Date: 20170202
  Transmission Date: 20170428
  Serious: Yes (Disabling, Other)
  Sender: FDA-Public Use
  Company Number: US-SA-2017SA010591

PATIENT
  Sex: Female

DRUGS (2)
  1. LANTUS SOLOSTAR [Suspect]
     Active Substance: INSULIN GLARGINE
     Indication: TYPE 2 DIABETES MELLITUS
     Dosage: DOSE:10 UNIT(S)
     Route: 065
  2. SOLOSTAR [Suspect]
     Active Substance: DEVICE

REACTIONS (5)
  - Underdose [Unknown]
  - Device issue [Unknown]
  - Cardiac disorder [Unknown]
  - Visual impairment [Unknown]
  - Balance disorder [Unknown]
